FAERS Safety Report 4542092-5 (Version None)
Quarter: 2004Q4

REPORT INFORMATION
  Report Type: 
  Country: None (occurrence: None)
  Receive Date: 20041230
  Receipt Date: 20041111
  Transmission Date: 20050328
  Serious: No
  Sender: FDA-Public Use
  Company Number: CA-MERCK-0411CAN00126

PATIENT
  Age: 57 Year
  Sex: Female
  Weight: 77 kg

DRUGS (6)
  1. VIOXX [Suspect]
     Indication: SPINAL OSTEOARTHRITIS
     Route: 048
     Dates: start: 20030101, end: 20040907
  2. VIOXX [Suspect]
     Indication: SPONDYLITIS
     Route: 048
     Dates: start: 20030101, end: 20040907
  3. IMIPRAMINE HYDROCHLORIDE [Concomitant]
     Route: 048
  4. TRAZODONE HYDROCHLORIDE [Concomitant]
     Route: 048
  5. ACETAMINOPHEN AND CODEINE PHOSPHATE [Concomitant]
     Indication: BACK PAIN
     Route: 065
  6. ESOMEPRAZOLE MAGNESIUM [Concomitant]
     Route: 048

REACTIONS (10)
  - ALANINE AMINOTRANSFERASE INCREASED [None]
  - AORTIC VALVE INCOMPETENCE [None]
  - BLOOD ALKALINE PHOSPHATASE INCREASED [None]
  - BLOOD AMYLASE INCREASED [None]
  - BLOOD BILIRUBIN INCREASED [None]
  - BODY TEMPERATURE DECREASED [None]
  - CAROTID ARTERY STENOSIS [None]
  - LOW DENSITY LIPOPROTEIN INCREASED [None]
  - MENINGIOMA [None]
  - TRANSIENT ISCHAEMIC ATTACK [None]
